FAERS Safety Report 6947516-1 (Version None)
Quarter: 2010Q3

REPORT INFORMATION
  Report Type: 
  Country: None (occurrence: None)
  Receive Date: 20100825
  Receipt Date: 20100812
  Transmission Date: 20110219
  Serious: Yes (Hospitalization, Other)
  Sender: FDA-Public Use
  Company Number: TPA2010A04490

PATIENT
  Age: 68 Year
  Sex: Male
  Weight: 124.7392 kg

DRUGS (4)
  1. ACTOPLUS MET [Suspect]
     Indication: TYPE 2 DIABETES MELLITUS
     Dosage: 15/500 MG, PER ORAL
     Route: 048
     Dates: start: 20080812
  2. METFORMIN HCL [Concomitant]
  3. LISINOPRIL [Concomitant]
  4. UNKNOWN BLOOD PRESSURE MEDICATION (ANTIHYPERTENSIVES) [Concomitant]

REACTIONS (1)
  - CORONARY ARTERY OCCLUSION [None]
